FAERS Safety Report 9146588 (Version 2)
Quarter: 2013Q1

REPORT INFORMATION
  Report Type: Spontaneous
  Country: US (occurrence: US)
  Receive Date: 20130307
  Receipt Date: 20130327
  Transmission Date: 20140127
  Serious: Yes (Hospitalization, Other)
  Sender: FDA-Public Use
  Company Number: US-ELI_LILLY_AND_COMPANY-US201302009484

PATIENT
  Age: 66 Year
  Sex: Male
  Weight: 78.91 kg

DRUGS (1)
  1. ZYPREXA [Suspect]
     Indication: AFFECTIVE DISORDER
     Dosage: 10 MG, EACH EVENING
     Route: 048

REACTIONS (2)
  - Small cell lung cancer [Not Recovered/Not Resolved]
  - Pneumonia [Recovered/Resolved]
